FAERS Safety Report 22656694 (Version 1)
Quarter: 2023Q2

REPORT INFORMATION
  Report Type: Report from Study
  Country: US (occurrence: US)
  Receive Date: 20230630
  Receipt Date: 20230630
  Transmission Date: 20230722
  Serious: Yes (Hospitalization)
  Sender: FDA-Public Use
  Company Number: US-ABBVIE-5309255

PATIENT
  Age: 82 Year
  Sex: Male

DRUGS (1)
  1. CREON [Suspect]
     Active Substance: PANCRELIPASE AMYLASE\PANCRELIPASE LIPASE\PANCRELIPASE PROTEASE
     Indication: Product used for unknown indication
     Route: 048
     Dates: start: 20130629

REACTIONS (4)
  - Pharyngeal operation [Unknown]
  - Dysphagia [Unknown]
  - Hypoacusis [Unknown]
  - Disorientation [Unknown]

NARRATIVE: CASE EVENT DATE: 20230621
